FAERS Safety Report 9168368 (Version 1)
Quarter: 2013Q1

REPORT INFORMATION
  Report Type: Spontaneous
  Country: US (occurrence: US)
  Receive Date: 20130318
  Receipt Date: 20130318
  Transmission Date: 20140127
  Serious: No
  Sender: FDA-Public Use
  Company Number: US-PFIZER INC-2013086255

PATIENT
  Age: 46 Year
  Sex: Female
  Weight: 63.49 kg

DRUGS (4)
  1. PRISTIQ [Suspect]
     Indication: DEPRESSION
     Dosage: 2 MG, DAILY
     Dates: end: 20130311
  2. FLEXERIL [Suspect]
     Indication: BACK DISORDER
     Dosage: 10 MG, 3X/DAY
  3. FLEXERIL [Suspect]
     Dosage: 10 MG, 1X/DAY
  4. XANAX [Concomitant]
     Indication: ANXIETY
     Dosage: 1 MG, 2X/DAY

REACTIONS (3)
  - Fatigue [Unknown]
  - Drug intolerance [Unknown]
  - Gallbladder disorder [Unknown]
